FAERS Safety Report 5159003-4 (Version None)
Quarter: 2006Q4

REPORT INFORMATION
  Report Type: 
  Country: None (occurrence: None)
  Receive Date: 20061114
  Receipt Date: 20061101
  Transmission Date: 20070319
  Serious: Yes (Other)
  Sender: FDA-Public Use
  Company Number: CHNY2006JP02835

PATIENT
  Age: 65 Year
  Sex: Male

DRUGS (1)
  1. NICOTINE [Suspect]
     Indication: SMOKING CESSATION THERAPY
     Dosage: 21 MG, QD, TRANSDERMAL
     Route: 062
     Dates: start: 20060916, end: 20060928

REACTIONS (5)
  - APPLICATION SITE EROSION [None]
  - DERMATITIS CONTACT [None]
  - HYPERSENSITIVITY [None]
  - ORAL MUCOSA EROSION [None]
  - TREATMENT NONCOMPLIANCE [None]
